FAERS Safety Report 5028078-5 (Version None)
Quarter: 2006Q2

REPORT INFORMATION
  Report Type: 
  Country: None (occurrence: None)
  Receive Date: 20060613
  Receipt Date: 20060531
  Transmission Date: 20061013
  Serious: Yes (Hospitalization)
  Sender: FDA-Public Use
  Company Number: 200613695BWH

PATIENT
  Age: 45 Year
  Sex: Female

DRUGS (11)
  1. AVELOX [Suspect]
     Indication: BRONCHIECTASIS
     Dosage: 400 MG, QD, ORAL
     Route: 048
     Dates: start: 20060426, end: 20060505
  2. AVELOX [Suspect]
     Indication: SINUS DISORDER
     Dosage: 400 MG, QD, ORAL
     Route: 048
     Dates: start: 20060426, end: 20060505
  3. AVELOX [Suspect]
     Indication: BRONCHIECTASIS
     Dosage: 400 MG, QD, ORAL
     Route: 048
     Dates: start: 20050801
  4. AVELOX [Suspect]
     Indication: SINUS DISORDER
     Dosage: 400 MG, QD, ORAL
     Route: 048
     Dates: start: 20050801
  5. AVELOX [Suspect]
     Indication: BRONCHIECTASIS
     Dosage: 400 MG, QD, ORAL
     Route: 048
     Dates: start: 20060101
  6. AVELOX [Suspect]
     Indication: SINUS DISORDER
     Dosage: 400 MG, QD, ORAL
     Route: 048
     Dates: start: 20060101
  7. LEVOTHROID [Concomitant]
  8. FOSAMAX [Concomitant]
  9. PULMICORT [Concomitant]
  10. LEVAQUIN [Concomitant]
  11. TEQUIN [Concomitant]

REACTIONS (10)
  - ASTHENIA [None]
  - CHILLS [None]
  - DIZZINESS [None]
  - HEPATIC FUNCTION ABNORMAL [None]
  - HYPOKALAEMIA [None]
  - HYPONATRAEMIA [None]
  - PYREXIA [None]
  - RASH [None]
  - RENAL IMPAIRMENT [None]
  - WHITE BLOOD CELL COUNT INCREASED [None]
